FAERS Safety Report 6401943-X (Version None)
Quarter: 2009Q4

REPORT INFORMATION
  Report Type: 
  Country: None (occurrence: None)
  Receive Date: 20091015
  Receipt Date: 20091013
  Transmission Date: 20100525
  Serious: Yes (Hospitalization)
  Sender: FDA-Public Use
  Company Number: A0811599A

PATIENT
  Age: 59 Year
  Sex: Female

DRUGS (10)
  1. ADVAIR DISKUS 100/50 [Suspect]
     Dosage: 1PUFF TWICE PER DAY
     Route: 055
     Dates: start: 20020101
  2. PLAVIX [Concomitant]
  3. GLUCOPHAGE [Concomitant]
  4. THEOPHYLLINE [Concomitant]
  5. LIPITOR [Concomitant]
  6. ZOLOFT [Concomitant]
  7. XANAX [Concomitant]
  8. SPIRIVA [Concomitant]
  9. PROVENTIL-HFA [Concomitant]
  10. OXYGEN [Concomitant]

REACTIONS (1)
  - RESPIRATORY ARREST [None]
